FAERS Safety Report 7069515-4 (Version None)
Quarter: 2010Q4

REPORT INFORMATION
  Report Type: 
  Country: None (occurrence: None)
  Receive Date: 20101028
  Receipt Date: 20100112
  Transmission Date: 20110411
  Serious: No
  Sender: FDA-Public Use
  Company Number: US-WYE-H12973810

PATIENT
  Sex: Female

DRUGS (5)
  1. EFFEXOR XR [Suspect]
     Indication: DEPRESSION
     Route: 048
  2. EFFEXOR XR [Suspect]
     Dosage: ^WEAN OFF EFFEXOR XR^
     Route: 048
  3. EFFEXOR XR [Suspect]
     Route: 048
     Dates: start: 20100105
  4. CLARITIN [Concomitant]
  5. VENLAFAXINE HYDROCHLORIDE [Suspect]
     Dosage: SWITCHED TO VENLAFAXINE TAB AND DECREASED DOSE TO 75 MG DAILY
     Dates: start: 20090901, end: 20100101

REACTIONS (4)
  - DEPRESSION [None]
  - DRUG INEFFECTIVE [None]
  - DRUG WITHDRAWAL SYNDROME [None]
  - MEMORY IMPAIRMENT [None]
